FAERS Safety Report 13609361 (Version 1)
Quarter: 2017Q2

REPORT INFORMATION
  Report Type: Spontaneous
  Country: US (occurrence: US)
  Receive Date: 20170602
  Receipt Date: 20170602
  Transmission Date: 20170830
  Serious: Yes (Hospitalization)
  Sender: FDA-Public Use
  Company Number: US-KADMON PHARMACEUTICALS, LLC-KAD201608-003183

PATIENT
  Age: 57 Year
  Sex: Male
  Weight: 86.63 kg

DRUGS (20)
  1. AMLODIPINE [Concomitant]
     Active Substance: AMLODIPINE BESYLATE
  2. VIEKIRA PAK [Suspect]
     Active Substance: DASABUVIR\OMBITASVIR\PARITAPREVIR\RITONAVIR
     Indication: HEPATITIS C
     Dosage: TABLET
     Route: 048
     Dates: start: 20150218
  3. TRAMADOL. [Concomitant]
     Active Substance: TRAMADOL
  4. PROGRAF [Concomitant]
     Active Substance: TACROLIMUS\TACROLIMUS ANHYDROUS
  5. VITAMIN D2 [Concomitant]
     Active Substance: ERGOCALCIFEROL
  6. MAGNESIUM OXIDE. [Concomitant]
     Active Substance: MAGNESIUM OXIDE
  7. OXYCODONE [Concomitant]
     Active Substance: OXYCODONE
  8. FLORINEF ACETATE [Concomitant]
     Active Substance: FLUDROCORTISONE ACETATE
  9. LASIX [Concomitant]
     Active Substance: FUROSEMIDE
  10. NOVOLOG [Concomitant]
     Active Substance: INSULIN ASPART
  11. NICOTINE. [Concomitant]
     Active Substance: NICOTINE
  12. PROTONIX [Concomitant]
     Active Substance: PANTOPRAZOLE SODIUM
  13. RIBAVIRIN 200 MG [Suspect]
     Active Substance: RIBAVIRIN
     Indication: HEPATITIS C
     Route: 048
     Dates: start: 20150218, end: 20160329
  14. VITAMIN C [Concomitant]
     Active Substance: ASCORBIC ACID
  15. CATAPRES [Concomitant]
     Active Substance: CLONIDINE HYDROCHLORIDE
  16. INSULIN GLARGINE [Concomitant]
     Active Substance: INSULIN GLARGINE
  17. PREDNISONE. [Concomitant]
     Active Substance: PREDNISONE
  18. METOPROLOL. [Concomitant]
     Active Substance: METOPROLOL
  19. CELLCEPT [Concomitant]
     Active Substance: MYCOPHENOLATE MOFETIL\MYCOPHENOLATE MOFETIL HYDROCHLORIDE
  20. FLOMAX [Concomitant]
     Active Substance: TAMSULOSIN HYDROCHLORIDE

REACTIONS (1)
  - Anaemia [Unknown]

NARRATIVE: CASE EVENT DATE: 20160322
